FAERS Safety Report 16676339 (Version 1)
Quarter: 2019Q3

REPORT INFORMATION
  Report Type: Spontaneous
  Country: FR (occurrence: FR)
  Receive Date: 20190807
  Receipt Date: 20190807
  Transmission Date: 20191004
  Serious: Yes (Hospitalization)
  Sender: FDA-Public Use
  Company Number: FR-PFIZER INC-2019330416

PATIENT
  Age: 67 Year
  Sex: Female
  Weight: 74 kg

DRUGS (7)
  1. ROCEPHINE [Suspect]
     Active Substance: CEFTRIAXONE SODIUM
     Indication: TUBO-OVARIAN ABSCESS
     Dosage: UNK
     Route: 042
     Dates: start: 20190625, end: 20190702
  2. PANTOPRAZOLE [Suspect]
     Active Substance: PANTOPRAZOLE
     Indication: OESOPHAGITIS
     Dosage: 80 MG, 1X/DAY
     Route: 048
     Dates: start: 20190613, end: 20190702
  3. FLAGYL [Suspect]
     Active Substance: METRONIDAZOLE\METRONIDAZOLE HYDROCHLORIDE
     Indication: TUBO-OVARIAN ABSCESS
     Dosage: UNK
     Route: 042
     Dates: start: 20190625, end: 20190702
  4. COUMADINE [Suspect]
     Active Substance: WARFARIN SODIUM
     Indication: ATRIAL FIBRILLATION
     Dosage: 5 MG, 1X/DAY
     Route: 048
     Dates: start: 20190615
  5. AMIODARONE HYDROCHLORIDE. [Concomitant]
     Active Substance: AMIODARONE HYDROCHLORIDE
     Indication: ATRIAL FIBRILLATION
     Dosage: 200 MG, 1X/DAY
     Route: 048
     Dates: start: 20190612
  6. TARGOCID [Suspect]
     Active Substance: TEICOPLANIN
     Indication: SEPTIC SHOCK
     Dosage: 800 MG, UNK
     Route: 042
     Dates: start: 20190531, end: 20190625
  7. TAZOCILLINE [Suspect]
     Active Substance: PIPERACILLIN SODIUM\TAZOBACTAM SODIUM
     Indication: SEPTIC SHOCK
     Dosage: 12 G, UNK
     Route: 042
     Dates: start: 20190531, end: 20190625

REACTIONS (3)
  - Pruritus [Not Recovered/Not Resolved]
  - Eczema [Not Recovered/Not Resolved]
  - Rash [Not Recovered/Not Resolved]

NARRATIVE: CASE EVENT DATE: 20190624
